FAERS Safety Report 15500904 (Version 2)
Quarter: 2022Q3

REPORT INFORMATION
  Report Type: Spontaneous
  Country: CO (occurrence: CO)
  Receive Date: 20181015
  Receipt Date: 20220829
  Transmission Date: 20221027
  Serious: Yes (Hospitalization, Other)
  Sender: FDA-Public Use
  Company Number: CO-SHIRE-CO201838641

PATIENT
  Age: 54 Year
  Sex: Female

DRUGS (10)
  1. FEIBA NF [Suspect]
     Active Substance: ANTI-INHIBITOR COAGULANT COMPLEX
     Indication: Acquired haemophilia
     Dosage: UNK
     Route: 065
  2. METHYLPREDNISOLONE [Concomitant]
     Active Substance: METHYLPREDNISOLONE
     Indication: Acquired haemophilia
     Route: 065
  3. CYCLOPHOSPHAMIDE [Concomitant]
     Active Substance: CYCLOPHOSPHAMIDE
     Indication: Acquired haemophilia
     Dosage: 750 UNK
     Route: 042
  4. CYCLOPHOSPHAMIDE [Concomitant]
     Active Substance: CYCLOPHOSPHAMIDE
     Dosage: 500 MILLIGRAM
     Route: 042
  5. RITUXIMAB [Concomitant]
     Active Substance: RITUXIMAB
     Indication: Acquired haemophilia
  6. PREDNISONE [Concomitant]
     Active Substance: PREDNISONE
     Indication: Acquired haemophilia
     Dosage: 1 MILLIGRAM/KILOGRAM, QD
     Route: 065
  7. CHLOROQUINE [Concomitant]
     Active Substance: CHLOROQUINE
     Indication: Acquired haemophilia
     Dosage: 250 MILLIGRAM, QD
     Route: 065
  8. PREDNISOLONE [Concomitant]
     Active Substance: PREDNISOLONE
     Indication: Product used for unknown indication
     Dosage: 2.5 MILLIGRAM, QD
     Route: 065
  9. AZATHIOPRINE [Concomitant]
     Active Substance: AZATHIOPRINE
     Indication: Product used for unknown indication
     Dosage: 50 MILLIGRAM, QD
     Route: 065
  10. HYDROXYCHLOROQUINE [Concomitant]
     Active Substance: HYDROXYCHLOROQUINE
     Indication: Product used for unknown indication
     Dosage: 400 MILLIGRAM, QD
     Route: 065

REACTIONS (1)
  - Therapeutic response decreased [Unknown]
